FAERS Safety Report 14899941 (Version 1)
Quarter: 2018Q2

REPORT INFORMATION
  Report Type: Spontaneous
  Country: US (occurrence: US)
  Receive Date: 20180516
  Receipt Date: 20180516
  Transmission Date: 20180711
  Serious: Yes (Other)
  Sender: FDA-Public Use
  Company Number: PHEH2018US018222

PATIENT
  Sex: Female

DRUGS (3)
  1. TETRACAINE. [Suspect]
     Active Substance: TETRACAINE
     Indication: PRODUCT USED FOR UNKNOWN INDICATION
     Route: 047
  2. TOBRAMYCIN. [Suspect]
     Active Substance: TOBRAMYCIN
     Indication: PRODUCT USED FOR UNKNOWN INDICATION
     Route: 065
  3. TROPICAMIDE. [Suspect]
     Active Substance: TROPICAMIDE
     Indication: PRODUCT USED FOR UNKNOWN INDICATION
     Route: 047

REACTIONS (9)
  - Chest pain [Unknown]
  - Mast cell activation syndrome [Unknown]
  - Respiratory rate decreased [Unknown]
  - Hypersensitivity [Unknown]
  - Throat tightness [Unknown]
  - Dysarthria [Unknown]
  - Disturbance in attention [Unknown]
  - Chest discomfort [Unknown]
  - Movement disorder [Unknown]
